FAERS Safety Report 6351460-0 (Version None)
Quarter: 2009Q3

REPORT INFORMATION
  Report Type: 
  Country: None (occurrence: None)
  Receive Date: 20090912
  Receipt Date: 20090622
  Transmission Date: 20100115
  Serious: Yes (Other)
  Sender: FDA-Public Use
  Company Number: US-ABBOTT-07P-163-0416905-00

PATIENT
  Sex: Female
  Weight: 63.106 kg

DRUGS (5)
  1. HUMIRA [Suspect]
     Indication: RHEUMATOID ARTHRITIS
     Route: 058
     Dates: start: 20070601
  2. ARTHROTEC [Concomitant]
     Indication: ANTIINFLAMMATORY THERAPY
  3. FOLIC ACID [Concomitant]
     Indication: VITAMIN SUPPLEMENTATION
  4. SALBUTAMOL [Concomitant]
     Indication: ASTHMA
  5. METHOTREXATE [Concomitant]
     Indication: RHEUMATOID ARTHRITIS

REACTIONS (2)
  - DRUG DELIVERY SYSTEM MALFUNCTION [None]
  - HEADACHE [None]
